FAERS Safety Report 11814125 (Version 1)
Quarter: 2015Q4

REPORT INFORMATION
  Report Type: Spontaneous
  Country: US (occurrence: None)
  Receive Date: 20151208
  Receipt Date: 20151208
  Transmission Date: 20160305
  Serious: No
  Sender: FDA-Public Use
  Company Number: None

PATIENT
  Age: 9 Year
  Sex: Female

DRUGS (9)
  1. TYLENOL [Concomitant]
     Active Substance: ACETAMINOPHEN
  2. ONFI [Concomitant]
     Active Substance: CLOBAZAM
  3. MOTRIN [Concomitant]
     Active Substance: IBUPROFEN
  4. VIMPAT [Concomitant]
     Active Substance: LACOSAMIDE
  5. AFINITOR DISPERZ [Suspect]
     Active Substance: EVEROLIMUS
     Indication: BRAIN NEOPLASM BENIGN
     Dosage: DILUTED TO 4MG WITH WATER
     Route: 048
     Dates: start: 20151110
  6. CYPROHEPTAD SYP [Concomitant]
  7. RANITIDINE [Concomitant]
     Active Substance: RANITIDINE\RANITIDINE HYDROCHLORIDE
  8. KLONOPIN [Concomitant]
     Active Substance: CLONAZEPAM
  9. CLONIDINE. [Concomitant]
     Active Substance: CLONIDINE

REACTIONS (1)
  - Diarrhoea [None]

NARRATIVE: CASE EVENT DATE: 20151207
